FAERS Safety Report 10900080 (Version 1)
Quarter: 2015Q1

REPORT INFORMATION
  Report Type: Spontaneous
  Country: US (occurrence: US)
  Receive Date: 20150310
  Receipt Date: 20150310
  Transmission Date: 20150721
  Serious: No
  Sender: FDA-Public Use
  Company Number: US-009507513-1503USA004337

PATIENT
  Age: 70 Year
  Sex: Male

DRUGS (3)
  1. INTELENCE [Concomitant]
     Active Substance: ETRAVIRINE
  2. VIREAD [Concomitant]
     Active Substance: TENOFOVIR DISOPROXIL FUMARATE
  3. ISENTRESS [Suspect]
     Active Substance: RALTEGRAVIR POTASSIUM
     Dosage: 400 MG, BID
     Route: 048
     Dates: start: 201406

REACTIONS (3)
  - Memory impairment [Unknown]
  - Poor quality sleep [Unknown]
  - Tachyphrenia [Unknown]

NARRATIVE: CASE EVENT DATE: 20150306
